FAERS Safety Report 8188119-3 (Version None)
Quarter: 2012Q1

REPORT INFORMATION
  Report Type: 
  Country: None (occurrence: None)
  Receive Date: 20120302
  Receipt Date: 20120216
  Transmission Date: 20120608
  Serious: No
  Sender: FDA-Public Use
  Company Number: B0781909A

PATIENT

DRUGS (9)
  1. SPASFON [Concomitant]
  2. TRIMEBUTINE [Concomitant]
  3. CEFTAZIDIME SODIUM [Suspect]
     Indication: URINARY TRACT INFECTION PSEUDOMONAL
     Dosage: 2 GRAM(S) PER DAY, INTRAVENOUS
     Route: 042
     Dates: start: 20120124, end: 20120125
  4. AMLODIPINE BESYLATE [Concomitant]
  5. FLUCONAZOLE [Concomitant]
  6. ME-PREDNISOLONE [Concomitant]
  7. CEFTRIAXONE SODIUM [Concomitant]
  8. METRONIDAZOLE [Concomitant]
  9. SACCHAROMYCES BOULARDII [Concomitant]

REACTIONS (1)
  - RASH ERYTHEMATOUS [None]
